FAERS Safety Report 25805399 (Version 1)
Quarter: 2025Q3

REPORT INFORMATION
  Report Type: Spontaneous
  Country: US (occurrence: US)
  Receive Date: 20250916
  Receipt Date: 20250916
  Transmission Date: 20251021
  Serious: Yes (Hospitalization, Other)
  Sender: ADVANZ PHARMA
  Company Number: US-ADVANZ PHARMA-202509008236

PATIENT

DRUGS (17)
  1. HYDROXYCHLOROQUINE SULFATE [Suspect]
     Active Substance: HYDROXYCHLOROQUINE SULFATE
  2. DILTIAZEM [Concomitant]
     Active Substance: DILTIAZEM
  3. ZYRTEC [Concomitant]
     Active Substance: CETIRIZINE HYDROCHLORIDE
  4. TREPROSTINIL [Concomitant]
     Active Substance: TREPROSTINIL
     Indication: Pulmonary arterial hypertension
     Route: 042
  5. STERILE DILUENT FOR TREPROSTINIL [Concomitant]
     Active Substance: WATER
  6. DOXYCYCLINE HYCLATE [Concomitant]
     Active Substance: DOXYCYCLINE HYCLATE
  7. METHOTREXATE [Concomitant]
     Active Substance: METHOTREXATE
  8. LETAIRIS [Concomitant]
     Active Substance: AMBRISENTAN
  9. PROLENSA [Concomitant]
     Active Substance: BROMFENAC SODIUM
  10. ORENCIA [Concomitant]
     Active Substance: ABATACEPT
  11. ADCIRCA [Concomitant]
     Active Substance: TADALAFIL
  12. LATANOPROST [Concomitant]
     Active Substance: LATANOPROST
  13. Chlorohexidine gluconate [Concomitant]
  14. LEUCOVORIN CALCIUM [Concomitant]
     Active Substance: LEUCOVORIN CALCIUM
  15. Tylenol Ex-Str tabs [Concomitant]
  16. TORSEMIDE [Concomitant]
     Active Substance: TORSEMIDE
  17. Dry eye relief [Concomitant]

REACTIONS (1)
  - Arthropathy [Unknown]
